FAERS Safety Report 7117832-1 (Version None)
Quarter: 2010Q4

REPORT INFORMATION
  Report Type: 
  Country: None (occurrence: None)
  Receive Date: 20101118
  Receipt Date: 20101118
  Transmission Date: 20110411
  Serious: Yes (Disabling)
  Sender: FDA-Public Use
  Company Number: None

PATIENT
  Sex: Female
  Weight: 74.8435 kg

DRUGS (1)
  1. LEVOTHYROXINE SODIUM [Suspect]
     Dosage: 1 ONCE DAILY

REACTIONS (3)
  - ASTHENIA [None]
  - GAIT DISTURBANCE [None]
  - MUSCLE INJURY [None]
